FAERS Safety Report 21450013 (Version 1)
Quarter: 2022Q4

REPORT INFORMATION
  Report Type: Spontaneous
  Country: SK (occurrence: SK)
  Receive Date: 20221013
  Receipt Date: 20221013
  Transmission Date: 20230113
  Serious: Yes (Death, Other)
  Sender: FDA-Public Use
  Company Number: None

PATIENT
  Age: 74 Year
  Sex: Female

DRUGS (1)
  1. CAPECITABINE [Suspect]
     Active Substance: CAPECITABINE
     Indication: Breast cancer

REACTIONS (9)
  - Metastases to pleura [Unknown]
  - Metastases to lung [Unknown]
  - COVID-19 [Fatal]
  - Metastases to liver [Unknown]
  - Respiratory failure [Fatal]
  - Drug ineffective [Unknown]
  - Lymphadenopathy [Unknown]
  - Metastases to bone [Unknown]
  - Disease progression [Unknown]
